FAERS Safety Report 6537760-X (Version None)
Quarter: 2010Q1

REPORT INFORMATION
  Report Type: 
  Country: None (occurrence: None)
  Receive Date: 20100114
  Receipt Date: 20100106
  Transmission Date: 20100710
  Serious: Yes (Other)
  Sender: FDA-Public Use
  Company Number: US-SANOFI-AVENTIS-2010SA001452

PATIENT
  Sex: Male

DRUGS (2)
  1. OPTICLICK [Suspect]
     Indication: TYPE 2 DIABETES MELLITUS
     Dates: start: 20050101
  2. LANTUS [Suspect]
     Indication: TYPE 2 DIABETES MELLITUS
     Dosage: DOSE:26 UNIT(S)
     Route: 058
     Dates: start: 20050101

REACTIONS (5)
  - BLOOD GLUCOSE INCREASED [None]
  - CATARACT [None]
  - DRUG DOSE OMISSION [None]
  - EYE HAEMORRHAGE [None]
  - VISUAL IMPAIRMENT [None]
